FAERS Safety Report 24177481 (Version 1)
Quarter: 2024Q3

REPORT INFORMATION
  Report Type: Other
  Country: US (occurrence: US)
  Receive Date: 20240806
  Receipt Date: 20240806
  Transmission Date: 20241016
  Serious: Yes (Hospitalization)
  Sender: ALVOGEN
  Company Number: US-ALVOGEN-2024095188

PATIENT
  Age: 48 Year
  Sex: Male

DRUGS (14)
  1. DEXAMETHASONE [Suspect]
     Active Substance: DEXAMETHASONE
     Indication: COVID-19
     Dosage: 10-DAYS COURSE OF 6 MG DEXAMETHASONE
  2. VITAMIN C [Concomitant]
     Active Substance: ASCORBIC ACID
     Indication: COVID-19
     Dosage: 10-DAY COURSE
  3. VITAMIN D [Concomitant]
     Active Substance: VITAMIN D NOS
     Indication: COVID-19
     Dosage: 10-DAY COURSE
  4. ZINC [Concomitant]
     Active Substance: ZINC
     Indication: COVID-19
     Dosage: 10-DAY COURSE
  5. ALBUTEROL [Concomitant]
     Active Substance: ALBUTEROL
     Indication: COVID-19
     Dosage: 10-DAY COURSE
     Route: 055
  6. EMTRICITABINE [Concomitant]
     Active Substance: EMTRICITABINE
     Indication: Antiretroviral therapy
  7. RILPIVIRINE [Concomitant]
     Active Substance: RILPIVIRINE
     Indication: Antiretroviral therapy
  8. Tenofovir/alafenamide [Concomitant]
     Indication: Antiretroviral therapy
  9. DOLUTEGRAVIR [Concomitant]
     Active Substance: DOLUTEGRAVIR
     Indication: Antiretroviral therapy
  10. AZITHROMYCIN [Concomitant]
     Active Substance: AZITHROMYCIN
     Indication: Bacterial infection
     Route: 048
  11. CEFTRIAXONE [Concomitant]
     Active Substance: CEFTRIAXONE\CEFTRIAXONE SODIUM
     Indication: Bacterial infection
     Route: 042
  12. SULFAMETHOXAZOLE\TRIMETHOPRIM [Concomitant]
     Active Substance: SULFAMETHOXAZOLE\TRIMETHOPRIM
     Indication: Prophylaxis
     Dosage: LATER DISCONTINUED UPON ADMISSION
     Route: 048
  13. SULFAMETHOXAZOLE\TRIMETHOPRIM [Concomitant]
     Active Substance: SULFAMETHOXAZOLE\TRIMETHOPRIM
     Indication: Prophylaxis
     Dosage: RESUMED WHEN HIS ?CD4 COUNT WAS FOUND TO BE LOW ON DAY 4
     Route: 048
  14. BARICITINIB [Concomitant]
     Active Substance: BARICITINIB
     Indication: Prophylaxis

REACTIONS (1)
  - Leukocytosis [Unknown]
